FAERS Safety Report 6208761-6 (Version None)
Quarter: 2009Q2

REPORT INFORMATION
  Report Type: 
  Country: None (occurrence: None)
  Receive Date: 20090529
  Receipt Date: 20090526
  Transmission Date: 20091009
  Serious: Yes (Life-Threatening, Hospitalization)
  Sender: FDA-Public Use
  Company Number: JP-BRISTOL-MYERS SQUIBB COMPANY-14637383

PATIENT
  Age: 67 Year
  Sex: Male

DRUGS (6)
  1. APIXABAN [Suspect]
     Indication: THROMBOSIS PROPHYLAXIS
     Route: 048
     Dates: start: 20090309
  2. WARFARIN SODIUM [Suspect]
     Indication: THROMBOSIS PROPHYLAXIS
     Route: 048
     Dates: start: 20090309
  3. PLACEBO [Suspect]
     Indication: THROMBOSIS PROPHYLAXIS
     Route: 048
     Dates: start: 20090309
  4. ATORVASTATIN CALCIUM [Concomitant]
  5. CARVEDILOL [Concomitant]
  6. IMIDAPRIL HCL [Concomitant]

REACTIONS (1)
  - AORTIC DISSECTION RUPTURE [None]
